FAERS Safety Report 7793548-3 (Version None)
Quarter: 2011Q4

REPORT INFORMATION
  Report Type: 
  Country: None (occurrence: None)
  Receive Date: 20111003
  Receipt Date: 20110928
  Transmission Date: 20120403
  Serious: Yes (Hospitalization)
  Sender: FDA-Public Use
  Company Number: US-SANOFI-AVENTIS-2011SA063868

PATIENT
  Age: 66 Year
  Sex: Female

DRUGS (12)
  1. HUMALOG [Suspect]
     Dosage: SLIDING SCALE
     Route: 065
  2. BIOTIN [Concomitant]
  3. ACYCLOVIR [Concomitant]
     Indication: PROPHYLAXIS
  4. ALL OTHER THERAPEUTIC PRODUCTS [Concomitant]
     Indication: MACULAR DEGENERATION
  5. ZINC [Concomitant]
     Indication: MACULAR DEGENERATION
  6. CEVIMELINE [Concomitant]
  7. GABAPENTIN [Concomitant]
     Indication: NEUROPATHY PERIPHERAL
  8. ERGOCALCIFEROL [Concomitant]
     Indication: SUPPLEMENTATION THERAPY
  9. OMEPRAZOLE [Concomitant]
  10. HUMIRA [Suspect]
     Indication: RHEUMATOID ARTHRITIS
     Dosage: 40MG/0.8ML 1 IN 2 WEEKS
     Route: 065
  11. LANTUS [Suspect]
     Dosage: DOSE:28 UNIT(S)
     Route: 058
  12. RANITIDINE [Concomitant]

REACTIONS (4)
  - BLOOD GLUCOSE DECREASED [None]
  - CYSTITIS [None]
  - CHEST PAIN [None]
  - WRONG DRUG ADMINISTERED [None]
